FAERS Safety Report 10469087 (Version 2)
Quarter: 2014Q4

REPORT INFORMATION
  Report Type: Spontaneous
  Country: US (occurrence: US)
  Receive Date: 20140923
  Receipt Date: 20141203
  Transmission Date: 20150528
  Serious: Yes (Hospitalization, Other)
  Sender: FDA-Public Use
  Company Number: US-JNJFOC-20140910219

PATIENT
  Age: 43 Year
  Sex: Female
  Weight: 53.07 kg

DRUGS (13)
  1. CYMBALTA [Concomitant]
     Active Substance: DULOXETINE HYDROCHLORIDE
     Dosage: 2 IN THE MORNING
  2. PANTOPRAZOLE [Concomitant]
     Active Substance: PANTOPRAZOLE SODIUM
     Dosage: 1 IN THE MORNING
  3. PROMETHAZINE [Concomitant]
     Active Substance: PROMETHAZINE\PROMETHAZINE HYDROCHLORIDE
  4. RISPERDAL [Concomitant]
     Active Substance: RISPERIDONE
     Dosage: 1/2 @ BED TIME
     Dates: start: 20080309
  5. WELLBUTRIN [Concomitant]
     Active Substance: BUPROPION HYDROCHLORIDE
     Dosage: 1 IN THE MORNING
  6. TYLENOL EXTRA STRENGTH [Suspect]
     Active Substance: ACETAMINOPHEN
     Indication: PAIN
     Dosage: EVERY 4-6 HOURS, TOTAL (40 DOSES)
     Route: 048
     Dates: start: 200803, end: 200803
  7. TYLENOL EXTRA STRENGTH [Suspect]
     Active Substance: ACETAMINOPHEN
     Indication: HEADACHE
     Dosage: EVERY 4-6 HOURS, TOTAL (40 DOSES)
     Route: 048
     Dates: start: 200803, end: 200803
  8. KLONOPIN [Concomitant]
     Active Substance: CLONAZEPAM
  9. LAMICTAL [Concomitant]
     Active Substance: LAMOTRIGINE
     Dosage: 1 IN THE MORNING AND 1 @ LUNCH.
  10. PRILOSEC [Concomitant]
     Active Substance: OMEPRAZOLE MAGNESIUM
  11. CLONAZEPAM. [Concomitant]
     Active Substance: CLONAZEPAM
     Dosage: 1/2 TABLET MORNING, AFTERNOON AND EVENING AND 1 AT NIGHT.
  12. PROTONIX [Concomitant]
     Active Substance: PANTOPRAZOLE SODIUM
  13. COLACE [Concomitant]
     Active Substance: DOCUSATE SODIUM

REACTIONS (5)
  - Cholestasis [Unknown]
  - Acute hepatic failure [Recovering/Resolving]
  - Hepatic encephalopathy [Recovering/Resolving]
  - Bacteraemia [Unknown]
  - Overdose [Unknown]

NARRATIVE: CASE EVENT DATE: 200803
